FAERS Safety Report 13102793 (Version 2)
Quarter: 2017Q1

REPORT INFORMATION
  Report Type: Spontaneous
  Country: DZ (occurrence: DZ)
  Receive Date: 20170110
  Receipt Date: 20170113
  Transmission Date: 20170428
  Serious: Yes (Hospitalization, Other)
  Sender: FDA-Public Use
  Company Number: DZ-ABBVIE-17P-003-1831493-00

PATIENT
  Age: 31 Year
  Sex: Female
  Weight: 54 kg

DRUGS (1)
  1. HUMIRA [Suspect]
     Active Substance: ADALIMUMAB
     Indication: CROHN^S DISEASE
     Route: 058
     Dates: start: 201609, end: 201701

REACTIONS (2)
  - Tuberculosis of central nervous system [Not Recovered/Not Resolved]
  - Encephalitis [Not Recovered/Not Resolved]

NARRATIVE: CASE EVENT DATE: 20170103
